FAERS Safety Report 8024888-0 (Version None)
Quarter: 2012Q1

REPORT INFORMATION
  Report Type: 
  Country: None (occurrence: None)
  Receive Date: 20120105
  Receipt Date: 20120102
  Transmission Date: 20120608
  Serious: Yes (Hospitalization, Disabling, Other)
  Sender: FDA-Public Use
  Company Number: PHHY2011BR51940

PATIENT
  Age: 50 Year
  Sex: Female

DRUGS (1)
  1. FORMOTEROL FUMARATE [Suspect]
     Indication: ASTHMA
     Dosage: UNK UKN, UNK
     Dates: start: 19970101

REACTIONS (4)
  - NERVOUSNESS [None]
  - FEELING ABNORMAL [None]
  - DEVICE MALFUNCTION [None]
  - ROAD TRAFFIC ACCIDENT [None]
